FAERS Safety Report 22235827 (Version 2)
Quarter: 2024Q1

REPORT INFORMATION
  Report Type: Spontaneous
  Country: JP (occurrence: None)
  Receive Date: 20230420
  Receipt Date: 20240222
  Transmission Date: 20240409
  Serious: Yes (Other)
  Sender: FDA-Public Use
  Company Number: 2023A089296

PATIENT
  Age: 86 Year
  Sex: Male

DRUGS (3)
  1. IMFINZI [Suspect]
     Active Substance: DURVALUMAB
     Indication: Non-small cell lung cancer
     Dosage: 1500.0MG UNKNOWN
     Route: 041
     Dates: start: 20230327
  2. IMJUDO [Suspect]
     Active Substance: TREMELIMUMAB\TREMELIMUMAB-ACTL
     Indication: Non-small cell lung cancer
     Dosage: 75.0MG UNKNOWN
     Route: 041
     Dates: start: 20230327
  3. ABRAXANE [Suspect]
     Active Substance: PACLITAXEL
     Dosage: DOSE UNKNOWN

REACTIONS (5)
  - Metastases to bone [Unknown]
  - Urinary retention [Not Recovered/Not Resolved]
  - Pyrexia [Unknown]
  - Diarrhoea [Recovering/Resolving]
  - Urinary tract infection [Unknown]

NARRATIVE: CASE EVENT DATE: 20230408
